FAERS Safety Report 24064353 (Version 1)
Quarter: 2024Q3

REPORT INFORMATION
  Report Type: Spontaneous
  Country: DE (occurrence: DE)
  Receive Date: 20240709
  Receipt Date: 20240709
  Transmission Date: 20241016
  Serious: Yes (Other)
  Sender: ACCORD
  Company Number: None

PATIENT
  Sex: Female

DRUGS (1)
  1. ARIPIPRAZOLE [Suspect]
     Active Substance: ARIPIPRAZOLE
     Indication: Product used for unknown indication
     Dosage: 4 WEEKLY COMPULSORY ARIPIPRAZOLE INJECTIONS

REACTIONS (13)
  - Sleep disorder [Unknown]
  - Pain [Unknown]
  - Anaemia [Unknown]
  - Weight decreased [Unknown]
  - Suicidal ideation [Unknown]
  - Arrhythmia [Unknown]
  - Libido disorder [Unknown]
  - Underweight [Unknown]
  - Red blood cell abnormality [Unknown]
  - Depression [Unknown]
  - White blood cell count abnormal [Unknown]
  - Migraine [Unknown]
  - Ill-defined disorder [Unknown]
